FAERS Safety Report 7878666-3 (Version None)
Quarter: 2011Q4

REPORT INFORMATION
  Report Type: 
  Country: None (occurrence: None)
  Receive Date: 20111028
  Receipt Date: 20111019
  Transmission Date: 20120403
  Serious: Yes (Other)
  Sender: FDA-Public Use
  Company Number: 1084910

PATIENT
  Age: 48 Year
  Sex: Female

DRUGS (27)
  1. DAPSONE [Suspect]
     Indication: BEHCET'S SYNDROME
     Dosage: TITRATED UP TO 100 MG TWICE DAILY, TITRATED UP TO 50 MG DAILY
  2. ARAVA [Suspect]
     Indication: BEHCET'S SYNDROME
     Dosage: 20 MG DAILY
  3. TERBUTALINE SULFATE [Concomitant]
  4. (ESOMEPRAZOLE) [Concomitant]
  5. PREGABALIN [Concomitant]
  6. ACYCLOVIR [Concomitant]
  7. (FENTANYL) [Concomitant]
  8. IMURAN [Suspect]
     Indication: BEHCET'S SYNDROME
     Dosage: TITRATED UP TO 150 MG DAILY
  9. ERYTHROMYCIN [Concomitant]
  10. SERTRALINE HYDROCHLORIDE [Concomitant]
  11. PLAQUENIL [Suspect]
     Indication: BEHCET'S SYNDROME
     Dosage: 300 MG DAILY, 200 MG DAILY, 200 MG TWICE DAILY, ORAL
     Route: 048
  12. ENBREL [Suspect]
     Indication: BEHCET'S SYNDROME
     Dosage: 25 MG TWICE WEEKLY
  13. THEOPHYLLINE [Concomitant]
  14. PENTOXIFYLLINE [Concomitant]
  15. METHOTREXATE [Suspect]
     Indication: BEHCET'S SYNDROME
     Dosage: 7.5 MG PER WEEK, TITRATED UP TO 20 MG PER WEEK
  16. CYTOXAN [Suspect]
     Indication: BEHCET'S SYNDROME
     Dosage: 250 MG, 250 MG, 500 MG, 750 MG, 1000 MG, 1250 MG, INTRAVENOUS
     Route: 042
  17. CYCLOSPORINE [Suspect]
     Indication: BEHCET'S SYNDROME
     Dates: end: 20010106
  18. REMICADE [Suspect]
     Indication: BEHCET'S SYNDROME
     Dosage: 200 MG, 300 MG, 400 MG, INTRAVENOUS
     Route: 042
  19. FUROSEMIDE [Concomitant]
  20. LEUKERAN [Suspect]
     Indication: BEHCET'S SYNDROME
     Dosage: TITRATED UP TO 4 MG DAILY, 3 MG DAILY, 3 MG DAILY
  21. FOLIC ACID [Concomitant]
  22. COLCHICINE [Suspect]
     Indication: BEHCET'S SYNDROME
     Dosage: 6 MG TWICE DAILY, 6 MG TWICE DAILY
  23. CELLCEPT [Suspect]
     Indication: BEHCET'S SYNDROME
     Dosage: 1000 MG TWICE DAILY
  24. RITUXAN [Suspect]
     Indication: BEHCET'S SYNDROME
     Dosage: 1000 MG, 1000 MG, INTRAVENOUS
     Route: 042
     Dates: end: 20060705
  25. PREDNISONE [Suspect]
     Indication: BEHCET'S SYNDROME
     Dosage: 10 MG DAILY
  26. FLUTICASONE PROPIONATE/SALMETEROL [Concomitant]
  27. IPRATROPIUM BROMIDE AND ALBUTEROL SULFATE [Concomitant]

REACTIONS (8)
  - NEUTROPENIA [None]
  - RASH [None]
  - MOUTH ULCERATION [None]
  - RENAL FAILURE [None]
  - NAUSEA [None]
  - SQUAMOUS CELL CARCINOMA OF SKIN [None]
  - ACCIDENTAL EXPOSURE [None]
  - ANAEMIA [None]
